FAERS Safety Report 11810718 (Version 1)
Quarter: 2015Q4

REPORT INFORMATION
  Report Type: Spontaneous
  Country: US (occurrence: None)
  Receive Date: 20151207
  Receipt Date: 20151207
  Transmission Date: 20160305
  Serious: Yes (Hospitalization)
  Sender: FDA-Public Use
  Company Number: None

PATIENT
  Age: 20 Year
  Sex: Female
  Weight: 90.72 kg

DRUGS (1)
  1. ZOLOFT [Suspect]
     Active Substance: SERTRALINE HYDROCHLORIDE
     Indication: ANXIETY
     Route: 048
     Dates: start: 20151205

REACTIONS (5)
  - Suicidal ideation [None]
  - Palpitations [None]
  - Pallor [None]
  - Abnormal behaviour [None]
  - Vomiting [None]

NARRATIVE: CASE EVENT DATE: 20151205
